FAERS Safety Report 6287788-2 (Version None)
Quarter: 2009Q3

REPORT INFORMATION
  Report Type: 
  Country: None (occurrence: None)
  Receive Date: 20090729
  Receipt Date: 20070522
  Transmission Date: 20100115
  Serious: Yes (Other)
  Sender: FDA-Public Use
  Company Number: US-ASTRAZENECA-2006UW21903

PATIENT
  Age: 38 Year
  Sex: Female
  Weight: 124.2 kg

DRUGS (20)
  1. SEROQUEL [Suspect]
     Indication: DEPRESSION
     Route: 048
     Dates: start: 20030801, end: 20050101
  2. SEROQUEL [Suspect]
     Indication: NERVOUSNESS
     Route: 048
     Dates: start: 20030801, end: 20050101
  3. SEROQUEL [Suspect]
     Dosage: 100 - 200 MG DAILY
     Route: 048
     Dates: start: 20040629
  4. SEROQUEL [Suspect]
     Dosage: 100 - 200 MG DAILY
     Route: 048
     Dates: start: 20040629
  5. GEODON [Concomitant]
     Dosage: 40 MG-120 MG DAILY
     Route: 048
     Dates: start: 20040927
  6. ZANAFLEX [Concomitant]
  7. LUNESTA [Concomitant]
  8. LUNESTA [Concomitant]
     Dates: start: 20040927
  9. MIRTAZAPINE [Concomitant]
  10. TRAZODONE [Concomitant]
     Route: 048
     Dates: start: 20040820
  11. ALPRAZOLAM [Concomitant]
     Dosage: 0.5 MG - 2 MG DAILY
     Route: 048
     Dates: start: 20040802
  12. PREVACID [Concomitant]
     Route: 048
     Dates: start: 20040820
  13. VIOXX [Concomitant]
     Route: 048
     Dates: start: 20040514
  14. CELEBREX [Concomitant]
     Route: 048
     Dates: start: 20040514
  15. PRILOSEC [Concomitant]
     Dates: start: 20050426
  16. NEXIUM [Concomitant]
     Dates: start: 20050111
  17. AVANDIA [Concomitant]
     Dosage: 4 MG THREE TIMES A DAY, 2 MG WITH BREAKFAST
     Dates: start: 20040927
  18. GABAPENTIN [Concomitant]
     Route: 048
     Dates: start: 20040927
  19. LIPITOR [Concomitant]
     Route: 048
     Dates: start: 20040927
  20. ZANAFLEX [Concomitant]
     Dates: start: 20050927

REACTIONS (4)
  - DIABETES MELLITUS [None]
  - DIABETES MELLITUS INADEQUATE CONTROL [None]
  - NEUROPATHY PERIPHERAL [None]
  - TYPE 2 DIABETES MELLITUS [None]
